FAERS Safety Report 16359451 (Version 2)
Quarter: 2019Q2

REPORT INFORMATION
  Report Type: Spontaneous
  Country: FR (occurrence: FR)
  Receive Date: 20190528
  Receipt Date: 20190611
  Transmission Date: 20190711
  Serious: Yes (Other)
  Sender: FDA-Public Use
  Company Number: FR-AUROBINDO-AUR-APL-2019-028846

PATIENT

DRUGS (20)
  1. REFRESH CELLUVISC [Suspect]
     Active Substance: CARBOXYMETHYLCELLULOSE SODIUM
     Indication: DRY EYE
     Dosage: UNK
     Route: 047
     Dates: start: 20190406, end: 20190408
  2. VANCOMYCINE SANDOZ [Suspect]
     Active Substance: VANCOMYCIN
     Indication: SEPSIS
     Dosage: 2 GRAM, DAILY
     Route: 042
     Dates: start: 20190404, end: 20190409
  3. PANTOPRAZOL ARROW 40 MG  POWDER FOR SOLUTION FOR INJECTION [Suspect]
     Active Substance: PANTOPRAZOLE SODIUM
     Indication: PRODUCT USED FOR UNKNOWN INDICATION
     Dosage: 40 MILLIGRAM, DAILY
     Route: 042
     Dates: start: 20190327, end: 20190416
  4. ONDANSETRON ACCORD [Suspect]
     Active Substance: ONDANSETRON
     Indication: NAUSEA
     Dosage: UNK
     Route: 042
     Dates: start: 20190405, end: 20190413
  5. AZYTER [Suspect]
     Active Substance: AZITHROMYCIN ANHYDROUS
     Indication: CONJUNCTIVITIS
     Dosage: UNK
     Route: 047
     Dates: start: 20190406, end: 20190409
  6. TRANXENE [Suspect]
     Active Substance: CLORAZEPATE DIPOTASSIUM
     Indication: ANXIETY
     Dosage: 2 DOSAGE FORM, DAILY
     Route: 048
     Dates: start: 20190327, end: 20190405
  7. ZERBAXA [Suspect]
     Active Substance: CEFTOLOZANE SULFATE\TAZOBACTAM SODIUM
     Indication: SEPSIS
     Dosage: UNK
     Route: 042
     Dates: start: 20190406
  8. FUROSEMIDE RENAUDIN [Suspect]
     Active Substance: FUROSEMIDE
     Indication: OEDEMA
     Dosage: 20 MILLIGRAM, TWO TIMES A DAY
     Route: 042
     Dates: start: 20190407
  9. ZARZIO [Suspect]
     Active Substance: FILGRASTIM
     Indication: STEM CELL TRANSPLANT
     Dosage: UNK
     Route: 042
     Dates: start: 20190330
  10. SMECTA [Suspect]
     Active Substance: MONTMORILLONITE
     Indication: DIARRHOEA
     Dosage: UNK
     Route: 048
     Dates: start: 20190318, end: 20190410
  11. CELLCEPT [Suspect]
     Active Substance: MYCOPHENOLATE MOFETIL\MYCOPHENOLATE MOFETIL HYDROCHLORIDE
     Indication: STEM CELL TRANSPLANT
     Dosage: UNK
     Route: 048
     Dates: start: 20190405
  12. OXYNORM [Suspect]
     Active Substance: OXYCODONE HYDROCHLORIDE
     Indication: ANALGESIC THERAPY
     Dosage: UNK
     Route: 042
     Dates: start: 20190327, end: 20190408
  13. HYDROXYZINE ARROW [Suspect]
     Active Substance: HYDROXYZINE HYDROCHLORIDE
     Indication: ANXIETY
     Dosage: 1 DOSAGE FORM, DAILY
     Route: 048
     Dates: start: 20190407, end: 20190407
  14. VALACYCLOVIR [Suspect]
     Active Substance: VALACYCLOVIR HYDROCHLORIDE
     Indication: PROPHYLAXIS
     Dosage: 1 DOSAGE FORM, DAILY
     Route: 048
     Dates: start: 20190315
  15. DIFICLIR [Suspect]
     Active Substance: FIDAXOMICIN
     Indication: CLOSTRIDIUM DIFFICILE COLITIS
     Dosage: 2 DOSAGE FORM, DAILY
     Route: 048
     Dates: start: 20190318, end: 20190416
  16. MAGNE B6 [Suspect]
     Active Substance: MAGNESIUM\PYRIDOXINE
     Indication: MAGNESIUM DEFICIENCY
     Dosage: UNK
     Route: 048
     Dates: start: 20190404, end: 20190413
  17. SANDIMMUN [Suspect]
     Active Substance: CYCLOSPORINE
     Indication: STEM CELL TRANSPLANT
     Dosage: UNK
     Route: 042
     Dates: start: 20190327
  18. VFEND [Suspect]
     Active Substance: VORICONAZOLE
     Indication: PROPHYLAXIS
     Dosage: 2 DOSAGE FORM, DAILY
     Route: 048
     Dates: start: 20190314
  19. SULFARLEM [Suspect]
     Active Substance: ANETHOLTRITHION
     Indication: PRODUCT USED FOR UNKNOWN INDICATION
     Dosage: UNK
     Route: 048
     Dates: start: 20190407, end: 20190413
  20. ALPRAZOLAM MYLAN [Suspect]
     Active Substance: ALPRAZOLAM
     Indication: ANXIETY
     Dosage: 2 DOSAGE FORM, DAILY
     Route: 048
     Dates: start: 20190330, end: 20190408

REACTIONS (1)
  - Encephalopathy [Recovering/Resolving]

NARRATIVE: CASE EVENT DATE: 20190408
